FAERS Safety Report 10419813 (Version 2)
Quarter: 2014Q4

REPORT INFORMATION
  Report Type: Spontaneous
  Country: US (occurrence: None)
  Receive Date: 20140828
  Receipt Date: 20141125
  Transmission Date: 20150528
  Serious: Yes (Hospitalization)
  Sender: FDA-Public Use
  Company Number: AXC-2014-000525

PATIENT
  Age: 54 Year
  Sex: Male
  Weight: 79.4 kg

DRUGS (2)
  1. PYLERA [Suspect]
     Active Substance: BISMUTH SUBCITRATE POTASSIUM\METRONIDAZOLE\TETRACYCLINE HYDROCHLORIDE
     Indication: HELICOBACTER INFECTION
     Dosage: 3 DF
     Route: 048
     Dates: start: 20140728
  2. OMEPRAZOLE. [Concomitant]
     Active Substance: OMEPRAZOLE

REACTIONS (5)
  - Tenosynovitis [None]
  - Myalgia [None]
  - Arthralgia [None]
  - Tendonitis [None]
  - Joint swelling [None]

NARRATIVE: CASE EVENT DATE: 20140801
